FAERS Safety Report 8397876-2 (Version None)
Quarter: 2012Q2

REPORT INFORMATION
  Report Type: 
  Country: None (occurrence: None)
  Receive Date: 20120531
  Receipt Date: 20120524
  Transmission Date: 20120825
  Serious: Yes (Other)
  Sender: FDA-Public Use
  Company Number: PHHY2012US044636

PATIENT
  Age: 63 Year
  Sex: Female

DRUGS (3)
  1. GLEEVEC [Suspect]
     Indication: CHRONIC MYELOID LEUKAEMIA
     Dosage: UNK UKN, UNK
  2. NAPROXEN [Suspect]
     Dosage: 220 MG, THRICE WEEKLY
  3. ESTROGEN NOS [Suspect]

REACTIONS (4)
  - SKIN FRAGILITY [None]
  - BLISTER [None]
  - DERMATITIS [None]
  - PSEUDOPORPHYRIA [None]
